FAERS Safety Report 19786715 (Version 8)
Quarter: 2021Q4

REPORT INFORMATION
  Report Type: Report from Study
  Country: CN (occurrence: CN)
  Receive Date: 20210903
  Receipt Date: 20211129
  Transmission Date: 20220303
  Serious: Yes (Hospitalization, Other)
  Sender: FDA-Public Use
  Company Number: CN-BIOVITRUM-2021CN7887

PATIENT
  Age: 65 Year
  Sex: Female
  Weight: 67 kg

DRUGS (9)
  1. AVATROMBOPAG [Suspect]
     Active Substance: AVATROMBOPAG
     Indication: Immune thrombocytopenia
     Route: 048
     Dates: start: 20210618, end: 20210624
  2. AVATROMBOPAG [Suspect]
     Active Substance: AVATROMBOPAG
     Route: 048
     Dates: start: 20210625, end: 20210701
  3. AVATROMBOPAG [Suspect]
     Active Substance: AVATROMBOPAG
     Route: 048
     Dates: start: 20210706, end: 20210713
  4. AVATROMBOPAG [Suspect]
     Active Substance: AVATROMBOPAG
     Route: 048
     Dates: start: 20210714, end: 20210721
  5. AVATROMBOPAG [Suspect]
     Active Substance: AVATROMBOPAG
     Route: 048
     Dates: start: 20210722, end: 20210727
  6. AVATROMBOPAG [Suspect]
     Active Substance: AVATROMBOPAG
     Route: 048
     Dates: start: 20210728, end: 20210803
  7. AVATROMBOPAG [Suspect]
     Active Substance: AVATROMBOPAG
     Route: 048
     Dates: start: 20210804, end: 20210815
  8. AVATROMBOPAG [Suspect]
     Active Substance: AVATROMBOPAG
     Route: 048
     Dates: start: 20210827, end: 20210830
  9. CALCITRIOL [Concomitant]
     Active Substance: CALCITRIOL
     Indication: Osteoporosis
     Route: 048
     Dates: start: 20210514

REACTIONS (2)
  - Lacunar infarction [Recovered/Resolved with Sequelae]
  - Immune thrombocytopenia [Recovered/Resolved]

NARRATIVE: CASE EVENT DATE: 20210818
